FAERS Safety Report 6124387-7 (Version None)
Quarter: 2009Q1

REPORT INFORMATION
  Report Type: 
  Country: None (occurrence: None)
  Receive Date: 20090318
  Receipt Date: 20090318
  Transmission Date: 20090719
  Serious: Yes (Other)
  Sender: FDA-Public Use
  Company Number: None

PATIENT
  Age: 63 Year
  Sex: Female
  Weight: 58.9676 kg

DRUGS (1)
  1. KENALOG [Suspect]
     Indication: MULTIPLE ALLERGIES
     Dates: start: 20081204, end: 20081204

REACTIONS (2)
  - INJECTION SITE REACTION [None]
  - PRODUCT QUALITY ISSUE [None]
